FAERS Safety Report 24436858 (Version 1)
Quarter: 2024Q4

REPORT INFORMATION
  Report Type: Spontaneous
  Country: BR (occurrence: BR)
  Receive Date: 20241015
  Receipt Date: 20241015
  Transmission Date: 20250115
  Serious: Yes (Other)
  Sender: NOVARTIS
  Company Number: BR-002147023-NVSC2024BR200435

PATIENT
  Sex: Female
  Weight: 77 kg

DRUGS (1)
  1. FEMARA [Suspect]
     Active Substance: LETROZOLE
     Indication: Breast cancer
     Dosage: 1 DOSAGE FORM, QD ( 2.5  WITH 28 TABLETS)
     Route: 065
     Dates: start: 2015

REACTIONS (4)
  - Deafness [Unknown]
  - Labyrinthitis [Unknown]
  - Pain in extremity [Unknown]
  - COVID-19 [Unknown]
